FAERS Safety Report 14578925 (Version 1)
Quarter: 2018Q1

REPORT INFORMATION
  Report Type: Spontaneous
  Country: US (occurrence: US)
  Receive Date: 20180227
  Receipt Date: 20180227
  Transmission Date: 20180509
  Serious: No
  Sender: FDA-Public Use
  Company Number: US-PERRIGO-17US026043

PATIENT
  Age: 69 Year
  Sex: Female
  Weight: 76.19 kg

DRUGS (3)
  1. NAPROXEN SODIUM. [Suspect]
     Active Substance: NAPROXEN SODIUM
     Indication: ARTHRALGIA
     Dosage: 220 MG, SINGLE
     Route: 048
     Dates: start: 20170816, end: 20170816
  2. VICKS SINEX /01054201/ [Suspect]
     Active Substance: ACETAMINOPHEN\CHLORPHENIRAMINE MALEATE\PHENYLPROPANOLAMINE
     Indication: RESPIRATORY TRACT CONGESTION
     Dosage: 2 LIQUID CAPS, PRN
     Route: 048
     Dates: start: 201706
  3. PROAIR HFA [Concomitant]
     Active Substance: ALBUTEROL SULFATE
     Indication: ASTHMA
     Dosage: UNK
     Route: 055
     Dates: start: 2016

REACTIONS (5)
  - Pruritus [Recovered/Resolved]
  - Pruritus [None]
  - Abdominal discomfort [Recovered/Resolved]
  - Chest discomfort [Recovered/Resolved]
  - Nausea [Recovered/Resolved]

NARRATIVE: CASE EVENT DATE: 20170816
